FAERS Safety Report 18774471 (Version 1)
Quarter: 2021Q1

REPORT INFORMATION
  Report Type: Spontaneous
  Country: CA (occurrence: CA)
  Receive Date: 20210122
  Receipt Date: 20210122
  Transmission Date: 20210419
  Serious: Yes (Life-Threatening, Hospitalization)
  Sender: FDA-Public Use
  Company Number: CA-PFIZER INC-2021044852

PATIENT
  Age: 14 Year
  Sex: Male
  Weight: 42 kg

DRUGS (9)
  1. POLYETHYLENE GLYCOL [MACROGOL] [Concomitant]
     Active Substance: POLYETHYLENE GLYCOLS
  2. ADRIAMYCIN [Suspect]
     Active Substance: DOXORUBICIN HYDROCHLORIDE
     Indication: OSTEOSARCOMA METASTATIC
     Dosage: 50 UG, 1X/DAY
     Route: 042
  3. CHLORHEXIDINE [Concomitant]
     Active Substance: CHLORHEXIDINE
  4. TRIMETHOPRIM SULFAMETHOXAZOLE [Concomitant]
     Active Substance: SULFAMETHOXAZOLE\TRIMETHOPRIM
  5. ZINECARD [Suspect]
     Active Substance: DEXRAZOXANE HYDROCHLORIDE
     Indication: OSTEOSARCOMA METASTATIC
     Dosage: 500 MG, 1X/DAY
     Route: 042
  6. ONDANSETRON [Concomitant]
     Active Substance: ONDANSETRON
  7. ACETAMINOPHEN. [Concomitant]
     Active Substance: ACETAMINOPHEN
  8. DIMENHYDRINATE. [Concomitant]
     Active Substance: DIMENHYDRINATE
  9. LORAZEPAM. [Concomitant]
     Active Substance: LORAZEPAM

REACTIONS (1)
  - Febrile neutropenia [Recovered/Resolved]
